FAERS Safety Report 6064577-5 (Version None)
Quarter: 2009Q1

REPORT INFORMATION
  Report Type: 
  Country: None (occurrence: None)
  Receive Date: 20090204
  Receipt Date: 20090126
  Transmission Date: 20090719
  Serious: Yes (Disabling)
  Sender: FDA-Public Use
  Company Number: B0552345A

PATIENT
  Age: 42 Year
  Sex: Female

DRUGS (1)
  1. SERETIDE [Suspect]
     Dates: start: 20081209, end: 20081223

REACTIONS (2)
  - GINGIVITIS [None]
  - ORAL CANDIDIASIS [None]
